FAERS Safety Report 7522886-4 (Version None)
Quarter: 2011Q2

REPORT INFORMATION
  Report Type: 
  Country: None (occurrence: None)
  Receive Date: 20110603
  Receipt Date: 20110524
  Transmission Date: 20111010
  Serious: Yes (Other)
  Sender: FDA-Public Use
  Company Number: PHHY2011NL31824

PATIENT
  Sex: Male

DRUGS (2)
  1. REQUIP [Suspect]
     Dosage: 24 MG, ONCE DAILY
  2. STALEVO 100 [Suspect]
     Indication: PARKINSON'S DISEASE
     Dosage: 125 MG, QID

REACTIONS (5)
  - MUSCULOSKELETAL STIFFNESS [None]
  - CONDITION AGGRAVATED [None]
  - ANGINA PECTORIS [None]
  - DYSPNOEA [None]
  - CHEST PAIN [None]
